FAERS Safety Report 9210865 (Version 1)
Quarter: 2013Q2

REPORT INFORMATION
  Report Type: Spontaneous
  Country: BR (occurrence: BR)
  Receive Date: 20130404
  Receipt Date: 20130404
  Transmission Date: 20140414
  Serious: Yes (Hospitalization, Other)
  Sender: FDA-Public Use
  Company Number: CHNY2013BR000909

PATIENT
  Sex: Female

DRUGS (5)
  1. CIBALENAA [Suspect]
     Indication: HEADACHE
     Dosage: 2 DF, QD
     Route: 048
  2. CIBALENAA [Suspect]
     Indication: BACK PAIN
  3. CALCIUM + VIT D [Concomitant]
     Indication: OSTEOPOROSIS
     Dosage: 3 DF, QD
     Route: 048
  4. ALENDRONATE [Concomitant]
     Indication: MINERAL SUPPLEMENTATION
     Dosage: 1 DF, QW
     Route: 048
  5. MULTIGRIP [Concomitant]
     Indication: RHINITIS
     Dosage: 1 DF, PRN
     Route: 048

REACTIONS (4)
  - Myocardial infarction [Recovered/Resolved]
  - Urinary tract infection [Recovered/Resolved]
  - Osteoporosis [Not Recovered/Not Resolved]
  - Back pain [Recovered/Resolved]
